FAERS Safety Report 12318162 (Version 2)
Quarter: 2016Q2

REPORT INFORMATION
  Report Type: Report from Study
  Country: FR (occurrence: FR)
  Receive Date: 20160429
  Receipt Date: 20160620
  Transmission Date: 20160815
  Serious: Yes (Other)
  Sender: FDA-Public Use
  Company Number: PHHY2016FR034935

PATIENT
  Age: 57 Year
  Sex: Male

DRUGS (3)
  1. ALLOPURINOL. [Concomitant]
     Active Substance: ALLOPURINOL
     Indication: PRODUCT USED FOR UNKNOWN INDICATION
     Route: 065
  2. TASIGNA [Suspect]
     Active Substance: NILOTINIB
     Indication: CHRONIC MYELOID LEUKAEMIA
     Dosage: 600 MG, QD (300 MG, 2 DF, DAILY)
     Route: 048
     Dates: start: 20141119, end: 20160310
  3. KARDEGIC [Concomitant]
     Active Substance: ASPIRIN LYSINE
     Indication: PRODUCT USED FOR UNKNOWN INDICATION
     Dosage: 75 MG, UNK
     Route: 065

REACTIONS (13)
  - Heart sounds abnormal [Not Recovered/Not Resolved]
  - Cardiac murmur [Unknown]
  - Arrhythmia [Not Recovered/Not Resolved]
  - Dilatation ventricular [Unknown]
  - Extrasystoles [Unknown]
  - Conduction disorder [Unknown]
  - Blood pressure decreased [Unknown]
  - Dyspnoea [Unknown]
  - Ventricular extrasystoles [Not Recovered/Not Resolved]
  - Electrocardiogram repolarisation abnormality [Unknown]
  - Inguinal hernia [Unknown]
  - Fatigue [Unknown]
  - Hypertension [Recovered/Resolved]

NARRATIVE: CASE EVENT DATE: 20141205
